FAERS Safety Report 11216060 (Version 1)
Quarter: 2015Q2

REPORT INFORMATION
  Report Type: Spontaneous
  Country: FR (occurrence: FR)
  Receive Date: 20150624
  Receipt Date: 20150624
  Transmission Date: 20150821
  Serious: Yes (Hospitalization)
  Sender: FDA-Public Use
  Company Number: FR-SA-2015SA089876

PATIENT
  Age: 83 Year
  Sex: Female

DRUGS (3)
  1. BACTRIM [Concomitant]
     Active Substance: SULFAMETHOXAZOLE\TRIMETHOPRIM
     Dates: end: 20150415
  2. TARGOCID [Concomitant]
     Active Substance: TEICOPLANIN
     Dosage: STRENGTH: 400 MG; LYOPHILISATE AND SOLUTION FOR PARENTERAL USAGE
     Dates: end: 20150415
  3. LOVENOX [Suspect]
     Active Substance: ENOXAPARIN SODIUM
     Indication: ATRIAL FIBRILLATION
     Route: 058
     Dates: start: 20150303, end: 20150414

REACTIONS (3)
  - Anti-platelet antibody positive [Not Recovered/Not Resolved]
  - Heparin-induced thrombocytopenia [Not Recovered/Not Resolved]
  - Heparin-induced thrombocytopenia test [Not Recovered/Not Resolved]

NARRATIVE: CASE EVENT DATE: 20150414
